FAERS Safety Report 23315142 (Version 1)
Quarter: 2023Q4

REPORT INFORMATION
  Report Type: Spontaneous
  Country: US (occurrence: None)
  Receive Date: 20231219
  Receipt Date: 20231219
  Transmission Date: 20240110
  Serious: Yes (unspecified)
  Sender: FDA-Public Use
  Company Number: None

PATIENT
  Age: 79 Year
  Sex: Male
  Weight: 72.6 kg

DRUGS (2)
  1. TECENTRIQ [Suspect]
     Active Substance: ATEZOLIZUMAB
     Indication: Neoplasm malignant
     Dosage: OTHER FREQUENCY : 1 TIME IV INFUSION;?
     Route: 041
     Dates: start: 20231218, end: 20231218
  2. DEMEROL [Concomitant]
     Active Substance: MEPERIDINE HYDROCHLORIDE
     Dates: start: 20231218, end: 20231218

REACTIONS (10)
  - Infusion related reaction [None]
  - Chest discomfort [None]
  - Dyspnoea [None]
  - Dyspnoea [None]
  - Oxygen saturation decreased [None]
  - Blood pressure fluctuation [None]
  - Disorientation [None]
  - Agitation [None]
  - Heart rate variability increased [None]
  - Heart rate irregular [None]

NARRATIVE: CASE EVENT DATE: 20231218
